FAERS Safety Report 9843094 (Version 3)
Quarter: 2014Q1

REPORT INFORMATION
  Report Type: Report from Study
  Country: CA (occurrence: CA)
  Receive Date: 20140124
  Receipt Date: 20140131
  Transmission Date: 20141002
  Serious: Yes (Other)
  Sender: FDA-Public Use
  Company Number: CA-ABBVIE-14P-028-1188279-00

PATIENT
  Sex: Female
  Weight: 104.42 kg

DRUGS (2)
  1. HUMIRA [Suspect]
     Indication: RHEUMATOID ARTHRITIS
     Route: 058
     Dates: start: 20100308
  2. HUMIRA [Suspect]
     Route: 058
     Dates: start: 20131202

REACTIONS (6)
  - Haemoglobin decreased [Recovered/Resolved]
  - Thrombophlebitis [Recovered/Resolved]
  - Osteoarthritis [Unknown]
  - Arthralgia [Not Recovered/Not Resolved]
  - Weight bearing difficulty [Unknown]
  - Arthralgia [Not Recovered/Not Resolved]
